FAERS Safety Report 8242823-7 (Version None)
Quarter: 2012Q1

REPORT INFORMATION
  Report Type: 
  Country: None (occurrence: None)
  Receive Date: 20120314
  Receipt Date: 20100601
  Transmission Date: 20120608
  Serious: Yes (Other)
  Sender: FDA-Public Use
  Company Number: PHHY2010US30324

PATIENT
  Age: 45 Year
  Sex: Female

DRUGS (2)
  1. SYNTHROID [Concomitant]
  2. FANAPT [Suspect]
     Indication: BIPOLAR DISORDER
     Dosage: 6 MG, BID, ORAL
     Route: 048
     Dates: start: 20100430, end: 20100503

REACTIONS (4)
  - FEELING JITTERY [None]
  - AGITATION [None]
  - ANXIETY [None]
  - LOSS OF CONSCIOUSNESS [None]
